FAERS Safety Report 4465875-9 (Version None)
Quarter: 2004Q4

REPORT INFORMATION
  Report Type: 
  Country: None (occurrence: None)
  Receive Date: 20041001
  Receipt Date: 20041001
  Transmission Date: 20050328
  Serious: Yes (Life-Threatening)
  Sender: FDA-Public Use
  Company Number: None

PATIENT
  Age: 55 Year
  Sex: Female
  Weight: 54.4316 kg

DRUGS (5)
  1. VIOXX [Suspect]
     Indication: ARTHRALGIA
     Dosage: 1 TIME A DAY FEW TIMES
     Dates: start: 20021015, end: 20040615
  2. VIOXX [Suspect]
     Indication: BACK PAIN
     Dosage: 1 TIME A DAY FEW TIMES
     Dates: start: 20021015, end: 20040615
  3. VIOXX [Suspect]
     Indication: FIBROMYALGIA
     Dosage: 1 TIME A DAY FEW TIMES
     Dates: start: 20021015, end: 20040615
  4. VIOXX [Suspect]
     Indication: OSTEOARTHRITIS
     Dosage: 1 TIME A DAY FEW TIMES
     Dates: start: 20021015, end: 20040615
  5. VIOXX [Suspect]
     Indication: PAIN IN EXTREMITY
     Dosage: 1 TIME A DAY FEW TIMES
     Dates: start: 20021015, end: 20040615

REACTIONS (3)
  - CHEST PAIN [None]
  - DISORIENTATION [None]
  - DIZZINESS [None]
